FAERS Safety Report 6793575-9 (Version None)
Quarter: 2010Q2

REPORT INFORMATION
  Report Type: 
  Country: None (occurrence: None)
  Receive Date: 20100624
  Receipt Date: 20090106
  Transmission Date: 20101027
  Serious: No
  Sender: FDA-Public Use
  Company Number: US-PFIZER INC-2008151717

PATIENT
  Age: 46 Year
  Sex: Female

DRUGS (1)
  1. GEODON [Suspect]
     Dosage: 60 MG, 1X/DAY

REACTIONS (2)
  - ANXIETY [None]
  - NAUSEA [None]
